FAERS Safety Report 17030944 (Version 1)
Quarter: 2019Q4

REPORT INFORMATION
  Report Type: Report from Study
  Country: US (occurrence: US)
  Receive Date: 20191114
  Receipt Date: 20191114
  Transmission Date: 20200122
  Serious: Yes (Hospitalization)
  Sender: FDA-Public Use
  Company Number: NVSC2019US030087

PATIENT
  Sex: Male
  Weight: 76.64 kg

DRUGS (1)
  1. TREPROSTINIL. [Suspect]
     Active Substance: TREPROSTINIL
     Indication: PULMONARY ARTERIAL HYPERTENSION
     Dosage: 42NG/KG/MIN
     Route: 042
     Dates: start: 20190530

REACTIONS (4)
  - Fluid retention [Unknown]
  - Catheter site infection [Recovering/Resolving]
  - Loss of consciousness [Unknown]
  - Lower limb fracture [Unknown]
